FAERS Safety Report 4679300-6 (Version None)
Quarter: 2005Q2

REPORT INFORMATION
  Report Type: 
  Country: None (occurrence: None)
  Receive Date: 20050531
  Receipt Date: 20050519
  Transmission Date: 20051028
  Serious: Yes (Life-Threatening)
  Sender: FDA-Public Use
  Company Number: B0373429A

PATIENT
  Age: 58 Year
  Sex: Female

DRUGS (5)
  1. PAXIL [Suspect]
     Indication: DYSTHYMIC DISORDER
     Dosage: 20 MG/PER DAY/ORAL
     Route: 048
     Dates: start: 20040527, end: 20050127
  2. TRIMEPRAZINE TARTRATE [Suspect]
     Dosage: 20 MG/PER DAY/ORAL
     Route: 048
     Dates: start: 20040527, end: 20050127
  3. CLOZAPINE [Suspect]
     Dosage: 450 MG/PER DAY/ORAL
     Route: 048
     Dates: start: 20040527, end: 20050127
  4. DIOSMECTITE [Concomitant]
  5. MOVICOL [Concomitant]

REACTIONS (5)
  - AGRANULOCYTOSIS [None]
  - BONE MARROW DEPRESSION [None]
  - BONE MARROW TOXICITY [None]
  - MAJOR DEPRESSION [None]
  - PYREXIA [None]
